FAERS Safety Report 18848523 (Version 3)
Quarter: 2021Q1

REPORT INFORMATION
  Report Type: Spontaneous
  Country: US (occurrence: US)
  Receive Date: 20210204
  Receipt Date: 20210208
  Transmission Date: 20210419
  Serious: Yes (Death)
  Sender: FDA-Public Use
  Company Number: US-CELGENEUS-USA-20210200914

PATIENT
  Sex: Male

DRUGS (10)
  1. POMALYST [Suspect]
     Active Substance: POMALIDOMIDE
     Dosage: 3? 5 MILLIGRAM
     Route: 048
     Dates: start: 201707
  2. POMALYST [Suspect]
     Active Substance: POMALIDOMIDE
     Dosage: 2?3 MILLIGRAM
     Route: 048
     Dates: start: 201307
  3. POMALYST [Suspect]
     Active Substance: POMALIDOMIDE
     Indication: PLASMA CELL MYELOMA
     Dosage: 3 MILLIGRAM
     Route: 048
     Dates: start: 201306
  4. POMALYST [Suspect]
     Active Substance: POMALIDOMIDE
     Dosage: 3 MILLIGRAM
     Route: 048
     Dates: start: 20191108
  5. POMALYST [Suspect]
     Active Substance: POMALIDOMIDE
     Dosage: 2? 5 MILLIGRAM
     Route: 048
     Dates: start: 201602
  6. POMALYST [Suspect]
     Active Substance: POMALIDOMIDE
     Dosage: 3? 5 MILLIGRAM
     Route: 048
     Dates: start: 201811
  7. POMALYST [Suspect]
     Active Substance: POMALIDOMIDE
     Dosage: 5?3 MILLIGRAM
     Route: 048
     Dates: start: 201504
  8. POMALYST [Suspect]
     Active Substance: POMALIDOMIDE
     Dosage: 2?5 MILLIGRAM
     Route: 048
     Dates: start: 201807
  9. POMALYST [Suspect]
     Active Substance: POMALIDOMIDE
     Dosage: 2? 3 MILLIGRAM
     Route: 048
     Dates: start: 201907
  10. ALPHA LIPOIC [Concomitant]
     Indication: PRODUCT USED FOR UNKNOWN INDICATION
     Route: 065

REACTIONS (1)
  - Neoplasm malignant [Fatal]
